FAERS Safety Report 13158790 (Version 1)
Quarter: 2017Q1

REPORT INFORMATION
  Report Type: Spontaneous
  Country: JP (occurrence: JP)
  Receive Date: 20170127
  Receipt Date: 20170127
  Transmission Date: 20170428
  Serious: Yes (Death)
  Sender: FDA-Public Use
  Company Number: JP-BIOCRYST PHARMACEUTICALS, INC.-2017BCR00015

PATIENT
  Age: 7 Decade
  Sex: Male

DRUGS (1)
  1. RAPIACTA [Suspect]
     Active Substance: PERAMIVIR
     Indication: INFLUENZA
     Dosage: 600 MG, UNK
     Route: 042
     Dates: start: 20170112, end: 20170112

REACTIONS (1)
  - Death [Fatal]

NARRATIVE: CASE EVENT DATE: 20170113
